FAERS Safety Report 7738787-2 (Version None)
Quarter: 2011Q3

REPORT INFORMATION
  Report Type: 
  Country: None (occurrence: None)
  Receive Date: 20110908
  Receipt Date: 20110826
  Transmission Date: 20111222
  Serious: Yes (Hospitalization)
  Sender: FDA-Public Use
  Company Number: IN-MYLANLABS-2011S1018204

PATIENT
  Age: 21 Year
  Sex: Male

DRUGS (4)
  1. DIVALPROEX SODIUM [Suspect]
     Route: 065
  2. DIVALPROEX SODIUM [Suspect]
     Indication: OVERDOSE
     Dosage: ENTERIC-COATED, DELAYED-RELEASE; CONSUMED APPROX 30G (150-170 TABLETS, 200MG EACH)
     Route: 048
  3. DIVALPROEX SODIUM [Suspect]
     Indication: BIPOLAR DISORDER
     Dosage: ENTERIC-COATED, DELAYED-RELEASE; CONSUMED APPROX 30G (150-170 TABLETS, 200MG EACH)
     Route: 048
  4. DIVALPROEX SODIUM [Suspect]
     Route: 065

REACTIONS (8)
  - METABOLIC ACIDOSIS [None]
  - RESPIRATORY ACIDOSIS [None]
  - OVERDOSE [None]
  - COMA [None]
  - HYPOTENSION [None]
  - HYPERNATRAEMIA [None]
  - HYPOGLYCAEMIA [None]
  - RESPIRATORY DEPRESSION [None]
